FAERS Safety Report 14341864 (Version 1)
Quarter: 2017Q4

REPORT INFORMATION
  Report Type: Spontaneous
  Country: US (occurrence: US)
  Receive Date: 20171229
  Receipt Date: 20171229
  Transmission Date: 20180321
  Serious: No
  Sender: FDA-Public Use
  Company Number: None

PATIENT
  Sex: Female
  Weight: 77.56 kg

DRUGS (2)
  1. ENBREL [Suspect]
     Active Substance: ETANERCEPT
     Indication: SENILE OSTEOPOROSIS
     Route: 058
  2. BONIVA [Suspect]
     Active Substance: IBANDRONATE SODIUM
     Dosage: Q3MONTH
     Route: 042
     Dates: start: 201504

REACTIONS (1)
  - Malaise [None]
